FAERS Safety Report 13107561 (Version 1)
Quarter: 2017Q1

REPORT INFORMATION
  Report Type: Spontaneous
  Country: US (occurrence: US)
  Receive Date: 20170112
  Receipt Date: 20170112
  Transmission Date: 20170428
  Serious: No
  Sender: FDA-Public Use
  Company Number: US-BIOGEN-2017BI00340223

PATIENT
  Sex: Male

DRUGS (1)
  1. TYSABRI [Suspect]
     Active Substance: NATALIZUMAB
     Indication: MULTIPLE SCLEROSIS
     Dosage: OVER 1 HOUR INFUSION
     Route: 042
     Dates: start: 20151008, end: 20151104

REACTIONS (2)
  - Abasia [Not Recovered/Not Resolved]
  - Drug ineffective [Unknown]
